FAERS Safety Report 25280754 (Version 2)
Quarter: 2025Q2

REPORT INFORMATION
  Report Type: Spontaneous
  Country: US (occurrence: US)
  Receive Date: 20250508
  Receipt Date: 20250611
  Transmission Date: 20250717
  Serious: No
  Sender: ABBVIE
  Company Number: US-ABBVIE-6269720

PATIENT
  Age: 35 Year
  Sex: Male
  Weight: 86.18 kg

DRUGS (8)
  1. SKYRIZI [Suspect]
     Active Substance: RISANKIZUMAB-RZAA
     Indication: Psoriatic arthropathy
     Route: 058
     Dates: start: 20240620
  2. ALEVE [Concomitant]
     Active Substance: NAPROXEN SODIUM
     Indication: Psoriatic arthropathy
  3. ALLEGRA [Concomitant]
     Active Substance: FEXOFENADINE HYDROCHLORIDE
     Indication: Multiple allergies
  4. ADZENYS XR-ODT [Concomitant]
     Active Substance: AMPHETAMINE
     Indication: Attention deficit hyperactivity disorder
  5. ZORYVE [Concomitant]
     Active Substance: ROFLUMILAST
     Indication: Psoriasis
  6. FLUTICASONE PROPIONATE [Concomitant]
     Active Substance: FLUTICASONE PROPIONATE
     Indication: Multiple allergies
  7. IBUPROFEN [Concomitant]
     Active Substance: IBUPROFEN
     Indication: Psoriatic arthropathy
  8. TRIAMCINOLONE [Concomitant]
     Active Substance: TRIAMCINOLONE
     Indication: Psoriasis
     Route: 061

REACTIONS (3)
  - Skin disorder [Not Recovered/Not Resolved]
  - Herpes zoster [Recovered/Resolved]
  - Psoriasis [Not Recovered/Not Resolved]

NARRATIVE: CASE EVENT DATE: 20240601
